FAERS Safety Report 4359668-0 (Version None)
Quarter: 2004Q2

REPORT INFORMATION
  Report Type: 
  Country: None (occurrence: None)
  Receive Date: 20040512
  Receipt Date: 20040430
  Transmission Date: 20050107
  Serious: Yes (Other)
  Sender: FDA-Public Use
  Company Number: NSADSS2002024609

PATIENT
  Age: 70 Year
  Sex: Male

DRUGS (7)
  1. REMICADE [Suspect]
     Indication: RHEUMATOID ARTHRITIS
     Dosage: 3 MG/KG, 1 IN 1 AS NECESSARY, INTRAVENOUS DRIP
     Route: 041
  2. METHOTREXATE SODIUM [Concomitant]
  3. LODINE [Concomitant]
  4. ADALET (NIFEDIPINE) [Concomitant]
  5. LOTENSIN [Concomitant]
  6. LIPITOR [Concomitant]
  7. INSULIN [Concomitant]

REACTIONS (2)
  - HAEMOGLOBIN DECREASED [None]
  - ULCER HAEMORRHAGE [None]
